FAERS Safety Report 4462913-4 (Version None)
Quarter: 2004Q3

REPORT INFORMATION
  Report Type: 
  Country: None (occurrence: None)
  Receive Date: 20040927
  Receipt Date: 20040908
  Transmission Date: 20050211
  Serious: Yes (Hospitalization)
  Sender: FDA-Public Use
  Company Number: D01200401580

PATIENT
  Age: 50 Year
  Sex: Male
  Weight: 113.6 kg

DRUGS (16)
  1. CISPLATIN [Suspect]
     Indication: NEOPLASM MALIGNANT
     Dosage: 100 MG/M2 OTHER - INTRAVENOUS NOS
     Route: 042
     Dates: start: 20040419, end: 20040419
  2. NYSTATIN [Concomitant]
  3. FLUOXETINE [Concomitant]
  4. BENZYDAMINE [Concomitant]
  5. GLAXAL BASE CREAM [Concomitant]
  6. ONDANSETRON HCL [Concomitant]
  7. DEXAMETHASONE [Concomitant]
  8. PROCHLORPERAZINE [Concomitant]
  9. METOCLOPRAMIDE [Concomitant]
  10. DIMENHYDRINATE [Concomitant]
  11. SENNA FRUIT [Concomitant]
  12. DOCUSATE SODIUM [Concomitant]
  13. BISACODYL [Concomitant]
  14. IBUPROFEN [Concomitant]
  15. PARACETAMOL [Concomitant]
  16. DICLOFENAC SODIUM [Concomitant]

REACTIONS (4)
  - DEHYDRATION [None]
  - DYSPHAGIA [None]
  - GLOSSODYNIA [None]
  - ORAL PAIN [None]
